FAERS Safety Report 7022300-1 (Version None)
Quarter: 2010Q3

REPORT INFORMATION
  Report Type: 
  Country: None (occurrence: None)
  Receive Date: 20100930
  Receipt Date: 20100921
  Transmission Date: 20110219
  Serious: Yes (Hospitalization)
  Sender: FDA-Public Use
  Company Number: US-ASTRAZENECA-2010SE44704

PATIENT
  Age: 694 Month
  Sex: Male
  Weight: 97.5 kg

DRUGS (5)
  1. SEROQUEL XR [Suspect]
     Indication: BIPOLAR DISORDER
     Route: 048
     Dates: start: 20090901
  2. PERPHENAZINE [Concomitant]
     Dates: start: 20090101
  3. LITHIUM [Concomitant]
  4. LORAZEPAM [Concomitant]
  5. REMERON [Concomitant]

REACTIONS (5)
  - ERECTILE DYSFUNCTION [None]
  - EYELID PTOSIS [None]
  - GALLBLADDER OPERATION [None]
  - INTESTINAL OBSTRUCTION [None]
  - WEIGHT DECREASED [None]
